FAERS Safety Report 10198057 (Version 2)
Quarter: 2014Q3

REPORT INFORMATION
  Report Type: Spontaneous
  Country: US (occurrence: US)
  Receive Date: 20140527
  Receipt Date: 20140815
  Transmission Date: 20150326
  Serious: Yes (Hospitalization, Other)
  Sender: FDA-Public Use
  Company Number: US-BAYER-2014-075703

PATIENT
  Age: 20 Year
  Sex: Female
  Weight: 51.25 kg

DRUGS (2)
  1. HURRICAINE [Concomitant]
     Active Substance: BENZOCAINE
     Indication: ANALGESIC THERAPY
     Dosage: UNK
     Dates: start: 20140212
  2. MIRENA [Suspect]
     Active Substance: LEVONORGESTREL
     Indication: CONTRACEPTION
     Dosage: 20 MCG/24HR, CONT
     Route: 015
     Dates: start: 20140212

REACTIONS (4)
  - Pelvic infection [None]
  - Uterine perforation [Not Recovered/Not Resolved]
  - Abdominal pain upper [Not Recovered/Not Resolved]
  - Pelvic pain [Not Recovered/Not Resolved]

NARRATIVE: CASE EVENT DATE: 20140224
